FAERS Safety Report 9798956 (Version 1)
Quarter: 2013Q4

REPORT INFORMATION
  Report Type: Spontaneous
  Country: US (occurrence: None)
  Receive Date: 20131231
  Receipt Date: 20131231
  Transmission Date: 20140711
  Serious: Yes (Hospitalization)
  Sender: FDA-Public Use
  Company Number: UCM201312-000097

PATIENT
  Age: 64 Year
  Sex: Male

DRUGS (6)
  1. AMLODIPINE [Suspect]
  2. ASPIRIN (ASPIRIN) (ASPIRIN) [Suspect]
  3. LISINOPRIL (LISINOPRIL) (LISINOPRIL) [Suspect]
  4. TORSEMIDE [Suspect]
  5. ACETAZOLAMIDE [Suspect]
  6. ATORVASTATIN [Suspect]

REACTIONS (4)
  - Oesophagitis [None]
  - Odynophagia [None]
  - Parakeratosis [None]
  - Renal failure acute [None]
